FAERS Safety Report 6199416-5 (Version None)
Quarter: 2009Q2

REPORT INFORMATION
  Report Type: 
  Country: None (occurrence: None)
  Receive Date: 20090522
  Receipt Date: 20090520
  Transmission Date: 20091009
  Serious: Yes (Hospitalization)
  Sender: FDA-Public Use
  Company Number: CA-BRISTOL-MYERS SQUIBB COMPANY-14632640

PATIENT
  Age: 52 Year
  Sex: Male
  Weight: 62 kg

DRUGS (17)
  1. TAXOL [Suspect]
     Indication: NON-SMALL CELL LUNG CANCER
     Route: 042
     Dates: start: 20060626, end: 20060626
  2. CARBOPLATIN [Suspect]
     Indication: NON-SMALL CELL LUNG CANCER
     Route: 042
     Dates: start: 20060626, end: 20060626
  3. NAPROSYN [Concomitant]
     Dates: start: 20060513
  4. PANTOPRAZOLE SODIUM [Concomitant]
     Dates: start: 20060513
  5. PARACETAMOL [Concomitant]
     Dates: start: 20060413
  6. OXAZEPAM [Concomitant]
  7. XATRAL [Concomitant]
     Dates: start: 20060513
  8. VERAPAMIL [Concomitant]
     Dates: start: 19810101
  9. PROCHLORPERAZINE [Concomitant]
     Dates: start: 20060626
  10. DECADRON [Concomitant]
     Dates: start: 20060625
  11. DILAUDID [Concomitant]
     Dates: start: 20060629
  12. MORPHINE SULFATE [Concomitant]
     Dates: start: 20060629
  13. DURAGESIC-100 [Concomitant]
     Dates: start: 20060719
  14. COLACE [Concomitant]
     Dates: start: 20060719
  15. SENOKOT [Concomitant]
     Dates: start: 20060719
  16. EPOETIN ALFA [Concomitant]
     Dates: start: 20060719
  17. PREDNISONE [Concomitant]
     Dates: start: 20060726

REACTIONS (1)
  - PAIN IN EXTREMITY [None]
